FAERS Safety Report 19773419 (Version 2)
Quarter: 2021Q3

REPORT INFORMATION
  Report Type: Other
  Country: CA (occurrence: CA)
  Receive Date: 20210901
  Receipt Date: 20210927
  Transmission Date: 20211014
  Serious: Yes (Other)
  Sender: FDA-Public Use
  Company Number: CA-CELLTRION INC.-2021CA011572

PATIENT

DRUGS (17)
  1. IRON SULPHATE [Concomitant]
     Active Substance: FERROUS SULFATE ANHYDROUS
     Dosage: 300 MILLIGRAM, 2 EVERY 1 DAYS
     Route: 048
  2. SENNOSIDES. [Concomitant]
     Active Substance: SENNOSIDES
     Indication: CONSTIPATION
     Dosage: 8.6 MILLIGRAM, 2 EVERY 1 DAY
     Route: 048
  3. SOLIRIS SINGLE USE, 300 MG/30ML [Concomitant]
     Dosage: 600 MILLIGRAM, 1 EVERY 2 WEEKS
     Route: 065
  4. ULTIBRO BREEZHALER [GLYCOPYRRONIUM BROMIDE;INDACATEROL MALEATE] [Concomitant]
     Active Substance: GLYCOPYRRONIUM\INDACATEROL
     Dosage: UNK, 1 EVERY 1 DAY
  5. CALCIUM CARBONATE. [Concomitant]
     Active Substance: CALCIUM CARBONATE
     Indication: OSTEOPOROSIS
     Dosage: 500.0 MILLIGRAM, 2 EVERY 1 DAYS
     Route: 048
  6. ROSUVASTATIN. [Concomitant]
     Active Substance: ROSUVASTATIN
     Indication: BLOOD CHOLESTEROL
     Dosage: 5 MILLIGRAM, 1 EVERY 1 DAY
     Route: 048
  7. PREGABALIN. [Concomitant]
     Active Substance: PREGABALIN
     Dosage: 100 MILLIGRAM, 1 EVERY 1 DAY
     Route: 048
  8. ZOPICLONE [Concomitant]
     Active Substance: ZOPICLONE
     Indication: INSOMNIA
     Dosage: 7.5 MILLIGRAM
     Route: 048
  9. RITUXIMAB. [Suspect]
     Active Substance: RITUXIMAB
     Indication: RHEUMATOID ARTHRITIS
     Dosage: 1000 MILLIGRAM
     Route: 042
  10. LUCENTIS [Concomitant]
     Active Substance: RANIBIZUMAB
     Dosage: 0.5 MILLIGRAM
     Route: 031
  11. SANDOZ IRBESARTAN [Concomitant]
     Active Substance: IRBESARTAN
     Indication: HYPERTENSION
     Dosage: 75 MILLIGRAM, 1 EVERY 1 DAY
     Route: 048
  12. MACROGOL 3350 [Concomitant]
     Active Substance: POLYETHYLENE GLYCOL 3350
     Indication: CONSTIPATION
     Dosage: 17 GRAM, 1 EVERY 1 DAYS
     Route: 048
  13. RITUXIMAB. [Suspect]
     Active Substance: RITUXIMAB
     Dosage: 1000 MILLIGRAM
     Route: 042
  14. PEPCID [Concomitant]
     Active Substance: FAMOTIDINE
     Indication: ULCER
     Dosage: 20 MILLIGRAM, 2 EVERY 1 DAY
     Route: 065
  15. RITUXIMAB. [Suspect]
     Active Substance: RITUXIMAB
     Indication: CRYOGLOBULINAEMIA
     Dosage: 1000 MILLIGRAM, 1 EVERY 6 MONTHS
     Route: 042
  16. FUROSEMIDE. [Concomitant]
     Active Substance: FUROSEMIDE
     Dosage: 20 MILLIGRAM, 1 EVERY 1 DAYS
     Route: 048
  17. PANTOPRAZOLE [Concomitant]
     Active Substance: PANTOPRAZOLE
     Indication: ILL-DEFINED DISORDER
     Dosage: 40 MILLIGRAM, 2 EVERY 1 DAY
     Route: 048

REACTIONS (3)
  - Renal cancer [Unknown]
  - Off label use [Unknown]
  - Bladder cancer [Unknown]
